FAERS Safety Report 9203933 (Version 1)
Quarter: 2013Q1

REPORT INFORMATION
  Report Type: Spontaneous
  Country: US (occurrence: None)
  Receive Date: 20130329
  Receipt Date: 20130329
  Transmission Date: 20140127
  Serious: Yes (Other)
  Sender: FDA-Public Use
  Company Number: None

PATIENT
  Age: 45 Year
  Sex: Male
  Weight: 120.2 kg

DRUGS (1)
  1. NAPROXEN 500 MG AMNEAL PHARMACEUTICALS [Suspect]
     Indication: ARTHRITIS
     Dates: start: 20130320, end: 20130328

REACTIONS (3)
  - Decreased appetite [None]
  - Depression [None]
  - Diarrhoea [None]
